FAERS Safety Report 7969871-6 (Version None)
Quarter: 2011Q4

REPORT INFORMATION
  Report Type: 
  Country: None (occurrence: None)
  Receive Date: 20111121
  Receipt Date: 20110808
  Transmission Date: 20120403
  Serious: No
  Sender: FDA-Public Use
  Company Number: 1000022698

PATIENT
  Age: 61 Year
  Sex: Female

DRUGS (8)
  1. ACIPHEX (RABEPRAZOLE SODIUM) (RABEPRAZOLE SODIUM) [Concomitant]
  2. NITROFURANTOIN (NITROFURANTOIN) (NITROFURANTOIN) [Concomitant]
  3. LEVOTHYROXINE (LEVOTHYROXINE SODIUM) (LEVOTHYROXINE SODIUM) [Concomitant]
  4. CLONAZEPAM [Concomitant]
  5. ACYCLOVIR (ACYCLOVIR) (ACYCLOVIR) [Concomitant]
  6. TERAZOSIN (TERAZOSIN) (TERAZOSIN) [Concomitant]
  7. VIIBRYD [Suspect]
     Indication: DEPRESSION
     Dosage: 5 MG (5 MG, 1 IN 1 D), ORAL
     Route: 048
     Dates: start: 20110803
  8. LITHIUM CARBONATE [Concomitant]

REACTIONS (1)
  - URINARY RETENTION [None]
